FAERS Safety Report 16806449 (Version 2)
Quarter: 2019Q3

REPORT INFORMATION
  Report Type: Report from Study
  Country: CA (occurrence: CA)
  Receive Date: 20190913
  Receipt Date: 20190920
  Transmission Date: 20191005
  Serious: Yes (Death)
  Sender: FDA-Public Use
  Company Number: CA-HLSUS-2019-CA-001069

PATIENT
  Age: 74 Year
  Sex: Male

DRUGS (5)
  1. DUTASTERIDE. [Concomitant]
     Active Substance: DUTASTERIDE
     Dosage: QPM
     Route: 048
  2. CLOZARIL [Suspect]
     Active Substance: CLOZAPINE
     Dosage: 12.5 MG QHS
     Route: 048
     Dates: start: 20170119, end: 20190726
  3. ATORVASTATIN [Concomitant]
     Active Substance: ATORVASTATIN
     Dosage: QPM
     Route: 048
  4. RIVASTIGMINE. [Concomitant]
     Active Substance: RIVASTIGMINE
     Route: 062
  5. ASA [Concomitant]
     Active Substance: ASPIRIN
     Route: 048

REACTIONS (1)
  - Death [Fatal]

NARRATIVE: CASE EVENT DATE: 20190726
